FAERS Safety Report 8312652-4 (Version None)
Quarter: 2012Q2

REPORT INFORMATION
  Report Type: 
  Country: None (occurrence: None)
  Receive Date: 20120426
  Receipt Date: 20120423
  Transmission Date: 20120825
  Serious: Yes (Hospitalization)
  Sender: FDA-Public Use
  Company Number: US-AMGEN-USASP2012012605

PATIENT
  Sex: Female
  Weight: 65.76 kg

DRUGS (1)
  1. PROLIA [Suspect]
     Indication: OSTEOPOROSIS POSTMENOPAUSAL

REACTIONS (8)
  - BLOOD SODIUM DECREASED [None]
  - URINARY RETENTION [None]
  - LIVER FUNCTION TEST ABNORMAL [None]
  - CONSTIPATION [None]
  - DERMATITIS ALLERGIC [None]
  - ALDOLASE INCREASED [None]
  - RENAL CYST [None]
  - SPINAL OSTEOARTHRITIS [None]
